FAERS Safety Report 6858630-3 (Version None)
Quarter: 2010Q3

REPORT INFORMATION
  Report Type: 
  Country: None (occurrence: None)
  Receive Date: 20100719
  Receipt Date: 20090308
  Transmission Date: 20110219
  Serious: No
  Sender: FDA-Public Use
  Company Number: US-PFIZER INC-2008012935

PATIENT
  Age: 66 Year
  Sex: Female
  Weight: 63.6 kg

DRUGS (13)
  1. CHANTIX [Suspect]
     Dosage: 0.5 MG, 1X/DAY
     Dates: start: 20080201
  2. BACLOFEN [Concomitant]
  3. PLAVIX [Concomitant]
  4. AMBIEN [Concomitant]
  5. SIMVASTATIN [Concomitant]
  6. AMLODIPINE [Concomitant]
  7. FOSAMAX [Concomitant]
  8. MULTI-VITAMINS [Concomitant]
  9. GLUCOSAMINE [Concomitant]
     Dosage: 1500 MG, UNK
  10. LOVAZA [Concomitant]
  11. BIOFLAVONOIDS [Concomitant]
  12. GINKGO BILOBA [Concomitant]
  13. ACETYLSALICYLIC ACID [Concomitant]

REACTIONS (3)
  - DRUG ADMINISTRATION ERROR [None]
  - PRODUCTIVE COUGH [None]
  - RHINORRHOEA [None]
